FAERS Safety Report 14528623 (Version 1)
Quarter: 2018Q1

REPORT INFORMATION
  Report Type: Report from Study
  Country: None (occurrence: AT)
  Receive Date: 20180214
  Receipt Date: 20180214
  Transmission Date: 20180509
  Serious: Yes (Hospitalization)
  Sender: FDA-Public Use
  Company Number: AT-ABBVIE-17K-009-2114369-00

PATIENT
  Sex: Male

DRUGS (3)
  1. DUODOPA [Suspect]
     Active Substance: CARBIDOPA\LEVODOPA
     Dosage: 16 H THERAPY:?MD: 2.5 ML, CR DAYTIME: 3.5 ML/H, ED: 2.5 ML ?100ML CASSETTE
     Route: 050
     Dates: start: 2017, end: 2017
  2. DUODOPA [Suspect]
     Active Substance: CARBIDOPA\LEVODOPA
     Indication: PARKINSON^S DISEASE
     Dosage: 24H THERAPY:??MD: 2.5ML, CR DAYTIME: 3.5ML/H, CR NOCTURNAL: 2.6ML/H; ED 2.5ML
     Route: 050
     Dates: start: 20170404, end: 2017
  3. DUODOPA [Suspect]
     Active Substance: CARBIDOPA\LEVODOPA
     Dosage: 16H THERAPY:?MD: 2.5ML, CR DAYTIME: 3.5ML/H, CR NOCTURNAL: 2.6ML/H, ED: 2.5ML
     Route: 050
     Dates: start: 2017

REACTIONS (11)
  - Oral disorder [Not Recovered/Not Resolved]
  - Tongue eruption [Recovering/Resolving]
  - Pain [Recovering/Resolving]
  - Stomatitis [Recovering/Resolving]
  - Vitamin B12 deficiency [Recovering/Resolving]
  - Stoma site hypergranulation [Recovering/Resolving]
  - Rash [Recovering/Resolving]
  - Stoma site irritation [Recovering/Resolving]
  - Pruritus [Not Recovered/Not Resolved]
  - Puncture site erythema [Recovering/Resolving]
  - Rash [Not Recovered/Not Resolved]

NARRATIVE: CASE EVENT DATE: 2017
